FAERS Safety Report 23716719 (Version 1)
Quarter: 2024Q2

REPORT INFORMATION
  Report Type: Spontaneous
  Country: US (occurrence: US)
  Receive Date: 20240408
  Receipt Date: 20240408
  Transmission Date: 20240716
  Serious: Yes (Hospitalization, Other)
  Sender: FDA-Public Use
  Company Number: US-ABBVIE-5708506

PATIENT
  Sex: Female

DRUGS (2)
  1. DALVANCE [Suspect]
     Active Substance: DALBAVANCIN
     Indication: Diabetic foot
     Dosage: TIME INTERVAL: AS NECESSARY
     Route: 065
  2. MEROPENEM [Concomitant]
     Active Substance: MEROPENEM
     Indication: Diabetic foot

REACTIONS (3)
  - Metabolic acidosis [Unknown]
  - Anaphylactic reaction [Unknown]
  - Off label use [Unknown]
